FAERS Safety Report 5567421-5 (Version None)
Quarter: 2007Q4

REPORT INFORMATION
  Report Type: 
  Country: None (occurrence: None)
  Receive Date: 20071214
  Receipt Date: 20071205
  Transmission Date: 20080405
  Serious: Yes (Hospitalization)
  Sender: FDA-Public Use
  Company Number: NL-JNJFOC-20070403512

PATIENT

DRUGS (1)
  1. DECITABINE (DECITABINE) LYOPHILIZED POWDER [Suspect]
     Indication: MYELODYSPLASTIC SYNDROME
     Dosage: 15 MG/M2, 3 IN 1 DAY, INTRAVENOUS
     Route: 042
     Dates: start: 20040628, end: 20050307

REACTIONS (7)
  - FEBRILE NEUTROPENIA [None]
  - HAEMOGLOBIN DECREASED [None]
  - PLATELET COUNT DECREASED [None]
  - TOOTH ABSCESS [None]
  - TOOTH EXTRACTION [None]
  - ULCER [None]
  - WHITE BLOOD CELL COUNT DECREASED [None]
